FAERS Safety Report 7421056-8 (Version None)
Quarter: 2011Q2

REPORT INFORMATION
  Report Type: 
  Country: None (occurrence: None)
  Receive Date: 20110418
  Receipt Date: 20110411
  Transmission Date: 20111010
  Serious: Yes (Hospitalization)
  Sender: FDA-Public Use
  Company Number: US-TEVA-275917USA

PATIENT
  Sex: Female

DRUGS (3)
  1. INTERFERON BETA-1A [Suspect]
     Dosage: 18.8571 MICROGRAM;
     Route: 058
     Dates: start: 20110204
  2. BACLOFEN [Suspect]
     Dates: end: 20110101
  3. OXYBUTYNIN [Suspect]
     Dates: end: 20110101

REACTIONS (3)
  - RASH [None]
  - ABDOMINAL DISTENSION [None]
  - OEDEMA PERIPHERAL [None]
